FAERS Safety Report 16392879 (Version 1)
Quarter: 2019Q2

REPORT INFORMATION
  Report Type: Spontaneous
  Country: US (occurrence: US)
  Receive Date: 20190429
  Receipt Date: 20190429
  Transmission Date: 20190711
  Serious: Yes (Life-Threatening)
  Sender: FDA-Public Use
  Company Number: None

PATIENT
  Age: 69 Year
  Sex: Male
  Weight: 65.32 kg

DRUGS (5)
  1. OXALIPLATIN 100MG VIAL [Suspect]
     Active Substance: OXALIPLATIN
     Indication: COLON CANCER
     Route: 042
     Dates: start: 20190419
  2. 5FU [Concomitant]
     Active Substance: FLUOROURACIL
  3. LEUCOVORIN. [Concomitant]
     Active Substance: LEUCOVORIN
  4. OXALIPLATIN 50MG VIAL [Suspect]
     Active Substance: OXALIPLATIN
  5. 5FU [Concomitant]
     Active Substance: FLUOROURACIL

REACTIONS (4)
  - Hypoaesthesia oral [None]
  - Erythema [None]
  - Urticaria [None]
  - Paraesthesia oral [None]

NARRATIVE: CASE EVENT DATE: 20190419
